FAERS Safety Report 7530093-4 (Version None)
Quarter: 2011Q2

REPORT INFORMATION
  Report Type: 
  Country: None (occurrence: None)
  Receive Date: 20110607
  Receipt Date: 20110601
  Transmission Date: 20111010
  Serious: Yes (Death, Hospitalization, Disabling, Other)
  Sender: FDA-Public Use
  Company Number: PHHY2011US31898

PATIENT
  Sex: Female

DRUGS (15)
  1. AFINITOR [Suspect]
     Dosage: 10 MG, QOD
     Route: 048
  2. SYMBICORT [Concomitant]
  3. DILANTIN [Concomitant]
  4. FLUTICASONE PROPIONATE W/SALMETEROL [Concomitant]
  5. TRAMADOL HCL [Concomitant]
  6. VICODIN [Concomitant]
  7. AFINITOR [Suspect]
     Indication: METASTATIC RENAL CELL CARCINOMA
     Dosage: 10 MG, DAILY
     Route: 048
     Dates: start: 20110318, end: 20110408
  8. ALLOPURINOL [Concomitant]
  9. VITAMIN TAB [Concomitant]
  10. CALCIUM CARBONATE [Concomitant]
  11. LOSARTAN POTASSIUM [Concomitant]
  12. AFINITOR [Suspect]
     Dosage: 5 MG, UNK
  13. ALBUTEROL SULFATE AUTOHALER [Concomitant]
  14. ADVAIR DISKUS 100/50 [Concomitant]
  15. PROAIR NASAL [Concomitant]

REACTIONS (23)
  - DEHYDRATION [None]
  - NAUSEA [None]
  - ASTHENIA [None]
  - RENAL DISORDER [None]
  - THROMBOCYTOPENIA [None]
  - FUNGAL INFECTION [None]
  - OROPHARYNGEAL PAIN [None]
  - CELLULITIS [None]
  - DIZZINESS [None]
  - RASH [None]
  - DYSSTASIA [None]
  - DECREASED APPETITE [None]
  - OEDEMA PERIPHERAL [None]
  - STOMATITIS [None]
  - VENOUS INSUFFICIENCY [None]
  - PAROSMIA [None]
  - FATIGUE [None]
  - RENAL FAILURE CHRONIC [None]
  - PAIN [None]
  - ABDOMINAL PAIN UPPER [None]
  - NEOPLASM MALIGNANT [None]
  - DYSPNOEA [None]
  - COUGH [None]
